FAERS Safety Report 9991489 (Version 1)
Quarter: 2014Q1

REPORT INFORMATION
  Report Type: Report from Study
  Country: US (occurrence: US)
  Receive Date: 20140310
  Receipt Date: 20140310
  Transmission Date: 20141002
  Serious: No
  Sender: FDA-Public Use
  Company Number: US-ABBVIE-13P-163-1133588-00

PATIENT
  Age: 31 Year
  Sex: Female

DRUGS (11)
  1. HUMIRA [Suspect]
     Indication: PSORIATIC ARTHROPATHY
     Dates: start: 20130801
  2. METFORMIN [Concomitant]
     Indication: POLYCYSTIC OVARIES
  3. LO LOESTRIN FE [Concomitant]
     Indication: POLYCYSTIC OVARIES
     Dosage: 1MG/10MG QD
  4. INTEGRA PLUS IRON [Concomitant]
     Indication: BLOOD IRON DECREASED
  5. MULTIVITAMIN [Concomitant]
     Indication: PRODUCT USED FOR UNKNOWN INDICATION
  6. B12 [Concomitant]
     Indication: PRODUCT USED FOR UNKNOWN INDICATION
  7. OMEGA 3 SUPPLEMENT [Concomitant]
     Indication: PRODUCT USED FOR UNKNOWN INDICATION
  8. LUMINEX [Concomitant]
     Indication: PRODUCT USED FOR UNKNOWN INDICATION
  9. REPLENEX [Concomitant]
     Indication: ARTHROPATHY
  10. MELATONIN [Concomitant]
     Indication: INSOMNIA
  11. MELATONIN [Concomitant]
     Indication: FATIGUE

REACTIONS (9)
  - Injection site erythema [Not Recovered/Not Resolved]
  - Injection site swelling [Not Recovered/Not Resolved]
  - Rash papular [Unknown]
  - Miliaria [Unknown]
  - Injection site pruritus [Not Recovered/Not Resolved]
  - Injection site nodule [Not Recovered/Not Resolved]
  - Injection site swelling [Not Recovered/Not Resolved]
  - Injection site warmth [Not Recovered/Not Resolved]
  - Injection site pain [Not Recovered/Not Resolved]
